FAERS Safety Report 23641012 (Version 1)
Quarter: 2024Q1

REPORT INFORMATION
  Report Type: Spontaneous
  Country: ES (occurrence: ES)
  Receive Date: 20240318
  Receipt Date: 20240318
  Transmission Date: 20240410
  Serious: Yes (Other)
  Sender: FDA-Public Use
  Company Number: None

PATIENT
  Age: 46 Year
  Sex: Male
  Weight: 79 kg

DRUGS (1)
  1. TREMFYA [Suspect]
     Active Substance: GUSELKUMAB
     Indication: Psoriasis
     Dosage: ME LO ADMINISTRAN CADA 2 O 3 MESES
     Route: 058
     Dates: start: 20180301

REACTIONS (3)
  - Epicondylitis [Recovered/Resolved]
  - Muscle rupture [Recovered/Resolved]
  - Muscle rupture [Recovered/Resolved]

NARRATIVE: CASE EVENT DATE: 20230703
